FAERS Safety Report 10550431 (Version 1)
Quarter: 2014Q4

REPORT INFORMATION
  Report Type: Spontaneous
  Country: US (occurrence: US)
  Receive Date: 20141029
  Receipt Date: 20141029
  Transmission Date: 20150529
  Serious: No
  Sender: FDA-Public Use
  Company Number: US-TEVA-458885USA

PATIENT
  Sex: Male
  Weight: 81.72 kg

DRUGS (4)
  1. PROVIGIL [Suspect]
     Active Substance: MODAFINIL
     Indication: SLEEP APNOEA SYNDROME
     Route: 048
  2. PROVENTIL [Concomitant]
     Active Substance: ALBUTEROL
     Indication: ASTHMA
  3. BALCET [Concomitant]
     Indication: GOUT
  4. PROVIGIL [Suspect]
     Active Substance: MODAFINIL
     Indication: NARCOLEPSY

REACTIONS (2)
  - Thinking abnormal [Not Recovered/Not Resolved]
  - Somnolence [Not Recovered/Not Resolved]
